FAERS Safety Report 9256798 (Version 1)
Quarter: 2013Q2

REPORT INFORMATION
  Report Type: Spontaneous
  Country: US (occurrence: US)
  Receive Date: 20130426
  Receipt Date: 20130426
  Transmission Date: 20140414
  Serious: No
  Sender: FDA-Public Use
  Company Number: US-009507513-1304USA015154

PATIENT
  Age: 66 Year
  Sex: Female

DRUGS (3)
  1. VICTRELIS [Suspect]
     Indication: HEPATITIS C
     Dosage: UNK
     Route: 048
     Dates: start: 20130222
  2. REBETOL [Suspect]
     Indication: HEPATITIS C
     Dosage: UNK
     Route: 048
     Dates: start: 20130125
  3. PEGASYS [Suspect]
     Dosage: UNK
     Dates: start: 20130125

REACTIONS (12)
  - Blood disorder [Recovered/Resolved]
  - Anger [Recovered/Resolved]
  - Musculoskeletal disorder [Recovered/Resolved]
  - Muscle spasms [Recovered/Resolved]
  - Pruritus [Recovered/Resolved]
  - Headache [Recovered/Resolved]
  - Eye pain [Recovered/Resolved]
  - Nervous system disorder [Recovered/Resolved]
  - Asthenia [Recovered/Resolved]
  - Arthralgia [Recovered/Resolved]
  - Rash [Recovered/Resolved]
  - Insomnia [Recovered/Resolved]
